FAERS Safety Report 15108603 (Version 2)
Quarter: 2018Q3

REPORT INFORMATION
  Report Type: Report from Study
  Country: IT (occurrence: IT)
  Receive Date: 20180705
  Receipt Date: 20180921
  Transmission Date: 20181010
  Serious: Yes (Other)
  Sender: FDA-Public Use
  Company Number: IT-TEVA-2018-IT-919299

PATIENT
  Age: 74 Year
  Sex: Male

DRUGS (5)
  1. TRAVATAN 40 MICROGRAMS/ML EYE DROPS, SOLUTION [Concomitant]
     Route: 065
  2. RAMIPRIL. [Concomitant]
     Active Substance: RAMIPRIL
     Route: 065
  3. LEVOFLOXACIN HEMIHYDRATE [Suspect]
     Active Substance: LEVOFLOXACIN
     Indication: PRODUCT USED FOR UNKNOWN INDICATION
     Route: 065
     Dates: start: 20180404, end: 20180404
  4. RELVAR ELLIPTA 92 MICROGRAMS / 22 MICROGRAMS INHALATION POWDER, PRE?DI [Concomitant]
     Route: 065
  5. SPIRIVA 18 MICROGRAMS, INHALATION POWDER, RIGID CAPSULE [Concomitant]
     Route: 065

REACTIONS (3)
  - Erythema [Unknown]
  - Hypersensitivity [Unknown]
  - Dyspnoea [Unknown]

NARRATIVE: CASE EVENT DATE: 20180404
